FAERS Safety Report 6369262-8 (Version None)
Quarter: 2009Q3

REPORT INFORMATION
  Report Type: 
  Country: None (occurrence: None)
  Receive Date: 20090916
  Receipt Date: 20090908
  Transmission Date: 20100115
  Serious: Yes (Death)
  Sender: FDA-Public Use
  Company Number: ADR20672009

PATIENT
  Age: 33 Year
  Sex: Male

DRUGS (4)
  1. LAMOTRIGINE [Suspect]
     Indication: CONVULSION
     Dosage: ORAL
     Route: 048
  2. FLONASE [Concomitant]
  3. OXCARBAZEPINE [Concomitant]
  4. VENTOLIN [Concomitant]

REACTIONS (1)
  - CARDIOMYOPATHY [None]
